FAERS Safety Report 5705634-X (Version None)
Quarter: 2008Q2

REPORT INFORMATION
  Report Type: 
  Country: None (occurrence: None)
  Receive Date: 20080415
  Receipt Date: 20080331
  Transmission Date: 20081010
  Serious: Yes (Hospitalization, Other)
  Sender: FDA-Public Use
  Company Number: CA-GENENTECH-258174

PATIENT
  Age: 48 Year
  Sex: Male
  Weight: 137 kg

DRUGS (10)
  1. AVASTIN [Suspect]
     Indication: RECTAL CANCER
     Dosage: UNK, UNK
     Route: 042
     Dates: start: 20071228
  2. ACEBUTOLOL [Concomitant]
     Indication: DRUG USE FOR UNKNOWN INDICATION
  3. DYAZIDE [Concomitant]
     Indication: DRUG USE FOR UNKNOWN INDICATION
  4. FRAGMIN [Concomitant]
     Indication: DRUG USE FOR UNKNOWN INDICATION
  5. NEUPOGEN [Concomitant]
     Indication: DRUG USE FOR UNKNOWN INDICATION
  6. DOXORUBICIN HCL [Concomitant]
     Indication: DRUG USE FOR UNKNOWN INDICATION
  7. CYCLOPHOSPHAMIDE [Concomitant]
     Indication: DRUG USE FOR UNKNOWN INDICATION
  8. IRINOTECAN HCL [Concomitant]
     Indication: DRUG USE FOR UNKNOWN INDICATION
  9. LEUCOVORIN CALCIUM [Concomitant]
     Indication: DRUG USE FOR UNKNOWN INDICATION
  10. FLUOROURACIL [Concomitant]
     Indication: DRUG USE FOR UNKNOWN INDICATION

REACTIONS (5)
  - ASTHENIA [None]
  - BRONCHITIS [None]
  - CHEST PAIN [None]
  - DIAPHRAGMATIC PARALYSIS [None]
  - HYPERSENSITIVITY [None]
